FAERS Safety Report 21046264 (Version 4)
Quarter: 2022Q3

REPORT INFORMATION
  Report Type: Spontaneous
  Country: JP (occurrence: JP)
  Receive Date: 20220706
  Receipt Date: 20220823
  Transmission Date: 20221026
  Serious: Yes (Hospitalization, Disabling, Other)
  Sender: FDA-Public Use
  Company Number: JP-BEH-2022147166

PATIENT
  Sex: Female
  Weight: .355 kg

DRUGS (6)
  1. ALBUMINAR-5 [Suspect]
     Active Substance: ALBUMIN HUMAN
     Dosage: UNK
     Route: 064
     Dates: start: 20210104, end: 20210104
  2. FOLATE SODIUM [Suspect]
     Active Substance: FOLATE SODIUM
     Route: 064
  3. IRON [Suspect]
     Active Substance: IRON
     Route: 064
  4. HEPARIN [Suspect]
     Active Substance: HEPARIN SODIUM
     Dosage: UNK
     Route: 064
  5. INSULIN NOS [Suspect]
     Active Substance: INSULIN NOS
     Dosage: UNK
     Route: 064
  6. BEZAFIBRATE [Suspect]
     Active Substance: BEZAFIBRATE
     Dosage: UNK
     Route: 064

REACTIONS (4)
  - Chronic respiratory disease [Unknown]
  - Foetal exposure during pregnancy [Unknown]
  - Premature baby [Unknown]
  - Foetal exposure during pregnancy [Unknown]
